FAERS Safety Report 12921751 (Version 1)
Quarter: 2016Q4

REPORT INFORMATION
  Report Type: Spontaneous
  Country: IT (occurrence: IT)
  Receive Date: 20161108
  Receipt Date: 20161108
  Transmission Date: 20170207
  Serious: Yes (Other)
  Sender: FDA-Public Use
  Company Number: IT-PFIZER INC-2016513888

PATIENT
  Age: 41 Year
  Sex: Male

DRUGS (5)
  1. VENLAFAXINE HCL [Suspect]
     Active Substance: VENLAFAXINE HYDROCHLORIDE
     Dosage: 1 DF, 1X/DAY
     Route: 048
     Dates: start: 20160101, end: 20161003
  2. DEPAKIN [Suspect]
     Active Substance: VALPROATE SODIUM
     Dosage: 1 DF, 1X/DAY
     Route: 048
     Dates: start: 20160101, end: 20161003
  3. MUTABON [Suspect]
     Active Substance: AMITRIPTYLINE HYDROCHLORIDE\PERPHENAZINE
     Dosage: 1 DF, 1X/DAY
     Route: 048
     Dates: start: 20160101, end: 20161003
  4. AERIUS [Suspect]
     Active Substance: DESLORATADINE
     Dosage: 1 DF, 1X/DAY
     Route: 048
     Dates: start: 20160101, end: 20161003
  5. FRONTAL [Suspect]
     Active Substance: ALPRAZOLAM
     Dosage: 1 DF, 1X/DAY
     Route: 048
     Dates: start: 20160101, end: 20161003

REACTIONS (3)
  - Vertigo [Recovering/Resolving]
  - Loss of consciousness [Recovering/Resolving]
  - Balance disorder [Recovering/Resolving]

NARRATIVE: CASE EVENT DATE: 20161003
